FAERS Safety Report 25789002 (Version 4)
Quarter: 2025Q4

REPORT INFORMATION
  Report Type: Spontaneous
  Country: JP (occurrence: JP)
  Receive Date: 20250911
  Receipt Date: 20251017
  Transmission Date: 20260119
  Serious: Yes (Hospitalization, Other)
  Sender: BRISTOL-MYERS SQUIBB COMPANY
  Company Number: JP-BRISTOL-MYERS SQUIBB COMPANY-2025-124768

PATIENT
  Age: 68 Year
  Sex: Male

DRUGS (2)
  1. YERVOY [Suspect]
     Active Substance: IPILIMUMAB
     Indication: Hepatocellular carcinoma
     Dosage: ONE DOSE
     Dates: start: 20250818, end: 20250818
  2. OPDIVO [Suspect]
     Active Substance: NIVOLUMAB
     Indication: Hepatocellular carcinoma
     Dosage: ONE DOSE
     Dates: start: 20250818, end: 20250818

REACTIONS (6)
  - Cytokine release syndrome [Unknown]
  - Multiple organ dysfunction syndrome [Unknown]
  - Pyrexia [Unknown]
  - Platelet count decreased [Unknown]
  - Serum ferritin increased [Recovering/Resolving]
  - Tumour haemorrhage [Unknown]

NARRATIVE: CASE EVENT DATE: 20250101
